FAERS Safety Report 9159918 (Version 2)
Quarter: 2013Q2

REPORT INFORMATION
  Report Type: Spontaneous
  Country: US (occurrence: US)
  Receive Date: 20130313
  Receipt Date: 20130402
  Transmission Date: 20140414
  Serious: Yes (Other)
  Sender: FDA-Public Use
  Company Number: US-PFIZER INC-2013081361

PATIENT
  Age: 41 Year
  Sex: Female
  Weight: 47.62 kg

DRUGS (2)
  1. LYRICA [Suspect]
     Indication: PERIPHERAL NERVE INJURY
     Dosage: UNK MG, 1X/DAY
     Route: 048
  2. LYRICA [Suspect]
     Indication: PERIPHERAL NERVE INJURY

REACTIONS (9)
  - Apparent death [Unknown]
  - Muscular weakness [Unknown]
  - Musculoskeletal disorder [Unknown]
  - Malaise [Unknown]
  - Decreased appetite [Unknown]
  - Weight decreased [Unknown]
  - Intentional drug misuse [Unknown]
  - Gait disturbance [Unknown]
  - Pain in extremity [Unknown]
